FAERS Safety Report 7396299-2 (Version None)
Quarter: 2011Q1

REPORT INFORMATION
  Report Type: 
  Country: None (occurrence: None)
  Receive Date: 20110331
  Receipt Date: 20110331
  Transmission Date: 20110831
  Serious: No
  Sender: FDA-Public Use
  Company Number: None

PATIENT
  Age: 84 Year
  Sex: Female
  Weight: 71.8 kg

DRUGS (1)
  1. LEVAQUIN [Suspect]
     Indication: PNEUMONIA
     Dosage: DAILY PO
     Route: 048
     Dates: start: 20110318, end: 20110321

REACTIONS (1)
  - TENDON DISORDER [None]
